FAERS Safety Report 23853347 (Version 1)
Quarter: 2024Q2

REPORT INFORMATION
  Report Type: Spontaneous
  Country: CN (occurrence: CN)
  Receive Date: 20240514
  Receipt Date: 20240514
  Transmission Date: 20240716
  Serious: Yes (Other)
  Sender: FDA-Public Use
  Company Number: CN-SUN PHARMACEUTICAL INDUSTRIES LTD-2024R1-445790

PATIENT
  Age: 72 Year
  Sex: Male

DRUGS (4)
  1. LEUCOVORIN CALCIUM [Suspect]
     Active Substance: LEUCOVORIN CALCIUM
     Indication: Pancreatic carcinoma metastatic
     Dosage: UNK (2 CYCLES)
     Route: 065
     Dates: start: 20221001
  2. IRINOTECAN [Suspect]
     Active Substance: IRINOTECAN
     Indication: Pancreatic carcinoma metastatic
     Dosage: UNK (2 CYCLES)
     Route: 065
     Dates: start: 20221001
  3. OXALIPLATIN [Suspect]
     Active Substance: OXALIPLATIN
     Indication: Pancreatic carcinoma metastatic
     Dosage: UNK (2 CYCLES)
     Route: 065
     Dates: start: 20221001
  4. FLUOROURACIL [Suspect]
     Active Substance: FLUOROURACIL
     Indication: Pancreatic carcinoma metastatic
     Dosage: UNK (2 CYCLES)
     Route: 065
     Dates: start: 20221001

REACTIONS (2)
  - Neoplasm recurrence [Unknown]
  - Metastasis [Unknown]
